FAERS Safety Report 17188494 (Version 1)
Quarter: 2019Q4

REPORT INFORMATION
  Report Type: Spontaneous
  Country: US (occurrence: US)
  Receive Date: 20191222
  Receipt Date: 20191222
  Transmission Date: 20200122
  Serious: Yes (Hospitalization, Other)
  Sender: FDA-Public Use
  Company Number: US-009507513-1912USA009024

PATIENT
  Sex: Male
  Weight: 2.66 kg

DRUGS (8)
  1. RENFLEXIS [Suspect]
     Active Substance: INFLIXIMAB-ABDA
     Dosage: UNK
     Route: 064
     Dates: start: 201807, end: 201910
  2. CYTOTEC [Concomitant]
     Active Substance: MISOPROSTOL
     Dosage: UNK
     Route: 064
     Dates: start: 20191025
  3. PITOCIN [Concomitant]
     Active Substance: OXYTOCIN
     Dosage: UNK
     Route: 064
     Dates: start: 20191025
  4. GENTAMICIN. [Concomitant]
     Active Substance: GENTAMICIN
     Dosage: UNK
     Route: 064
     Dates: start: 20191025
  5. BETAMETHASONE DIPROPIONATE. [Suspect]
     Active Substance: BETAMETHASONE DIPROPIONATE
     Dosage: UNK
     Route: 064
  6. IRON (UNSPECIFIED) (+) MINERALS (UNSPECIFIED) (+) VITAMINS (UNSPECIFIE [Concomitant]
     Active Substance: IRON\MINERALS\VITAMINS
     Dosage: UNK
     Route: 064
  7. AMPICILLIN [Concomitant]
     Active Substance: AMPICILLIN
     Dosage: UNK
     Route: 064
     Dates: start: 20191025
  8. REMICADE [Concomitant]
     Active Substance: INFLIXIMAB
     Dosage: 10 GRAM PER KILOGRAM, EVERY 6 WEEKS
     Route: 064

REACTIONS (4)
  - Foetal exposure during pregnancy [Recovered/Resolved]
  - Tachycardia [Unknown]
  - Histoplasmosis disseminated [Unknown]
  - Premature baby [Unknown]

NARRATIVE: CASE EVENT DATE: 2019
